FAERS Safety Report 9766349 (Version 1)
Quarter: 2013Q4

REPORT INFORMATION
  Report Type: Spontaneous
  Country: US (occurrence: US)
  Receive Date: 20131217
  Receipt Date: 20131217
  Transmission Date: 20140711
  Serious: No
  Sender: FDA-Public Use
  Company Number: US-GLAXOSMITHKLINE-A1026318A

PATIENT
  Sex: Male

DRUGS (6)
  1. VOTRIENT [Suspect]
     Indication: NEOPLASM
     Dosage: 800MG PER DAY
     Route: 048
  2. VEMURAFENIB [Concomitant]
  3. RAPAMUNE [Concomitant]
  4. OXYCODONE [Concomitant]
  5. LEVOTHYROXIN [Concomitant]
  6. ZYPREXA [Concomitant]

REACTIONS (1)
  - Adverse drug reaction [Unknown]
